FAERS Safety Report 20085367 (Version 1)
Quarter: 2021Q4

REPORT INFORMATION
  Report Type: Spontaneous
  Country: US (occurrence: US)
  Receive Date: 20211118
  Receipt Date: 20211118
  Transmission Date: 20220303
  Serious: No
  Sender: FDA-Public Use
  Company Number: US-AMNEAL PHARMACEUTICALS-2021-AMRX-00913

PATIENT
  Sex: Female

DRUGS (2)
  1. COLCHICINE [Suspect]
     Active Substance: COLCHICINE
     Indication: Product used for unknown indication
     Dosage: 1 TABLETS, 2 /DAY
     Route: 048
     Dates: start: 20210228, end: 2021
  2. COLCHICINE [Suspect]
     Active Substance: COLCHICINE
     Dosage: 1 TABLETS, 1 /DAY
     Route: 048
     Dates: start: 20210305, end: 20210305

REACTIONS (1)
  - Diarrhoea [Not Recovered/Not Resolved]

NARRATIVE: CASE EVENT DATE: 20210228
